FAERS Safety Report 7867412-5 (Version None)
Quarter: 2011Q4

REPORT INFORMATION
  Report Type: 
  Country: None (occurrence: None)
  Receive Date: 20111028
  Receipt Date: 20111018
  Transmission Date: 20120403
  Serious: Yes (Other)
  Sender: FDA-Public Use
  Company Number: US-BAYER-2011-048198

PATIENT
  Age: 31 Year
  Sex: Female
  Weight: 96 kg

DRUGS (3)
  1. LOESTRIN FE 1/20 [Concomitant]
  2. TYLENOL-500 [Concomitant]
     Dosage: UNK UNK, PRN
  3. YASMIN [Suspect]
     Dosage: UNK
     Dates: start: 20070101, end: 20090101

REACTIONS (4)
  - PLEURAL EFFUSION [None]
  - PULMONARY EMBOLISM [None]
  - PAIN [None]
  - PNEUMONIA [None]
